FAERS Safety Report 5574375-4 (Version None)
Quarter: 2007Q4

REPORT INFORMATION
  Report Type: 
  Country: None (occurrence: None)
  Receive Date: 20071221
  Receipt Date: 20071212
  Transmission Date: 20080405
  Serious: Yes (Death, Other)
  Sender: FDA-Public Use
  Company Number: 2007SP025003

PATIENT
  Sex: Female

DRUGS (1)
  1. INTERFERON (MANUFACTURER UNKNOWN) [Suspect]
     Indication: DRUG USE FOR UNKNOWN INDICATION
     Dosage: SC
     Route: 058

REACTIONS (2)
  - CONVULSION [None]
  - DRUG ABUSE [None]
